FAERS Safety Report 14789229 (Version 5)
Quarter: 2019Q1

REPORT INFORMATION
  Report Type: Report from Study
  Country: AR (occurrence: AR)
  Receive Date: 20180423
  Receipt Date: 20190325
  Transmission Date: 20190417
  Serious: Yes (Other)
  Sender: FDA-Public Use
  Company Number: PHHY2013AR034161

PATIENT
  Age: 43 Year
  Sex: Female

DRUGS (4)
  1. LAPENAX [Suspect]
     Active Substance: CLOZAPINE
     Indication: TUBEROUS SCLEROSIS COMPLEX
     Dosage: 300 MG, QD
     Route: 048
     Dates: start: 20061113
  2. CARBAMAZEPINE. [Suspect]
     Active Substance: CARBAMAZEPINE
     Indication: PRODUCT USED FOR UNKNOWN INDICATION
     Route: 065
  3. LAPENAX [Suspect]
     Active Substance: CLOZAPINE
     Dosage: 500 MG, QD
     Route: 048
     Dates: start: 20061113
  4. HALOPERIDOL. [Concomitant]
     Active Substance: HALOPERIDOL
     Indication: PRODUCT USED FOR UNKNOWN INDICATION
     Route: 065

REACTIONS (3)
  - Leukopenia [Not Recovered/Not Resolved]
  - Neutropenia [Not Recovered/Not Resolved]
  - Product use in unapproved indication [Unknown]

NARRATIVE: CASE EVENT DATE: 20130327
